FAERS Safety Report 9822941 (Version 2)
Quarter: 2014Q1

REPORT INFORMATION
  Report Type: Spontaneous
  Country: US (occurrence: US)
  Receive Date: 20140116
  Receipt Date: 20140116
  Transmission Date: 20141002
  Serious: No
  Sender: FDA-Public Use
  Company Number: US-GILEAD-2010-0031294

PATIENT
  Age: 78 Year
  Sex: Male
  Weight: 110.68 kg

DRUGS (12)
  1. LETAIRIS [Suspect]
     Indication: PULMONARY ARTERIAL HYPERTENSION
     Route: 048
     Dates: start: 20100806
  2. TOPROL [Concomitant]
     Indication: HYPERTENSION
  3. TOPROL [Concomitant]
     Indication: CORONARY ARTERY DISEASE
  4. ASPIRIN [Concomitant]
     Indication: CORONARY ARTERY DISEASE
  5. AVAPRO [Concomitant]
     Indication: HYPERTENSION
     Dates: end: 20100902
  6. HYDROCHLOROTHIAZIDE [Concomitant]
     Indication: HYPERTENSION
     Dates: end: 20100902
  7. FUROSEMIDE [Concomitant]
     Indication: HYPERTENSION
  8. FUROSEMIDE [Concomitant]
     Indication: PULMONARY ARTERIAL HYPERTENSION
  9. IPRATROPIUM BROMIDE [Concomitant]
  10. OMEPRAZOLE DR [Concomitant]
     Indication: GASTROOESOPHAGEAL REFLUX DISEASE
  11. CRESTOR [Concomitant]
     Indication: HYPERLIPIDAEMIA
  12. CELEBREX [Concomitant]
     Indication: ARTHRITIS

REACTIONS (1)
  - Fluid retention [Recovered/Resolved]
